FAERS Safety Report 8862132 (Version 6)
Quarter: 2013Q2

REPORT INFORMATION
  Report Type: Spontaneous
  Country: DE (occurrence: SE)
  Receive Date: 20121026
  Receipt Date: 20130509
  Transmission Date: 20140414
  Serious: Yes (Hospitalization)
  Sender: FDA-Public Use
  Company Number: SE-FRI-1000039802

PATIENT
  Sex: Female
  Weight: 57 kg

DRUGS (7)
  1. ROFLUMILAST [Suspect]
     Indication: CHRONIC OBSTRUCTIVE PULMONARY DISEASE
     Dosage: 500 MCG
     Route: 048
     Dates: start: 20110414, end: 20110428
  2. COMBIVENT [Concomitant]
  3. SERETIDE DISKUS [Concomitant]
  4. SPIRIVA [Concomitant]
  5. THEODUR [Concomitant]
  6. ASOPT [Concomitant]
  7. ACETYLCYSTEIN [Concomitant]

REACTIONS (3)
  - Chronic obstructive pulmonary disease [Recovered/Resolved with Sequelae]
  - Increased bronchial secretion [Recovered/Resolved with Sequelae]
  - Pneumonia [Recovered/Resolved with Sequelae]
